FAERS Safety Report 16998691 (Version 1)
Quarter: 2019Q4

REPORT INFORMATION
  Report Type: Spontaneous
  Country: US (occurrence: US)
  Receive Date: 20191106
  Receipt Date: 20191106
  Transmission Date: 20200122
  Serious: No
  Sender: FDA-Public Use
  Company Number: US-MYLANLABS-2019M1102612

PATIENT
  Age: 47 Year
  Sex: Female
  Weight: 73 kg

DRUGS (1)
  1. DYMISTA [Suspect]
     Active Substance: AZELASTINE HYDROCHLORIDE\FLUTICASONE PROPIONATE
     Indication: HYPERSENSITIVITY
     Dosage: ^ONCE OR TWICE A DAY IN EACH NOSTRILS^
     Route: 045
     Dates: start: 20190925, end: 2019

REACTIONS (5)
  - Eye discharge [Recovered/Resolved]
  - Eye pain [Recovered/Resolved]
  - Eye allergy [Recovered/Resolved]
  - Drug ineffective [Recovered/Resolved]
  - Eye swelling [Recovered/Resolved]

NARRATIVE: CASE EVENT DATE: 20190928
